FAERS Safety Report 7049010-9 (Version None)
Quarter: 2010Q4

REPORT INFORMATION
  Report Type: 
  Country: None (occurrence: None)
  Receive Date: 20101018
  Receipt Date: 20101014
  Transmission Date: 20110411
  Serious: Yes (Hospitalization, Other)
  Sender: FDA-Public Use
  Company Number: US-BRISTOL-MYERS SQUIBB COMPANY-15334923

PATIENT
  Age: 79 Year
  Sex: Female

DRUGS (2)
  1. ERBITUX [Suspect]
     Indication: TONGUE NEOPLASM MALIGNANT STAGE UNSPECIFIED
     Route: 042
     Dates: start: 20100628, end: 20100811
  2. RADIATION THERAPY [Suspect]

REACTIONS (5)
  - MUCOSAL INFLAMMATION [None]
  - ODYNOPHAGIA [None]
  - RADIATION SKIN INJURY [None]
  - SCAB [None]
  - SWELLING [None]
